FAERS Safety Report 12455185 (Version 1)
Quarter: 2016Q2

REPORT INFORMATION
  Report Type: Spontaneous
  Country: US (occurrence: None)
  Receive Date: 20160609
  Receipt Date: 20160609
  Transmission Date: 20160815
  Serious: No
  Sender: FDA-Public Use
  Company Number: None

PATIENT
  Age: 41 Year
  Sex: Male
  Weight: 90.72 kg

DRUGS (1)
  1. NUCALA [Suspect]
     Active Substance: MEPOLIZUMAB
     Indication: RASH
     Route: 058
     Dates: start: 20160106, end: 20160608

REACTIONS (2)
  - Rash pruritic [None]
  - Rash erythematous [None]

NARRATIVE: CASE EVENT DATE: 20160608
